FAERS Safety Report 8589573-5 (Version None)
Quarter: 2012Q3

REPORT INFORMATION
  Report Type: 
  Country: None (occurrence: None)
  Receive Date: 20120813
  Receipt Date: 20120801
  Transmission Date: 20120928
  Serious: Yes (Hospitalization)
  Sender: FDA-Public Use
  Company Number: US-ACTELION-A-NJ2012-62078

PATIENT
  Age: 34 Year
  Sex: Female

DRUGS (4)
  1. TRACLEER [Suspect]
     Indication: PULMONARY ARTERIAL HYPERTENSION
     Dosage: UNK
     Route: 048
  2. REVATIO [Concomitant]
  3. COUMADIN [Concomitant]
  4. REMODULIN [Concomitant]

REACTIONS (7)
  - PYREXIA [None]
  - INFUSION SITE CELLULITIS [None]
  - CHILLS [None]
  - SEPSIS [None]
  - RASH PRURITIC [None]
  - VOMITING [None]
  - CONDITION AGGRAVATED [None]
